FAERS Safety Report 25536035 (Version 2)
Quarter: 2025Q4

REPORT INFORMATION
  Report Type: Report from Study
  Country: US (occurrence: US)
  Receive Date: 20250709
  Receipt Date: 20251013
  Transmission Date: 20260118
  Serious: No
  Sender: TG THERAPEUTICS
  Company Number: US-TG THERAPEUTICS INC.-TGT004860

PATIENT

DRUGS (3)
  1. UBLITUXIMAB [Suspect]
     Active Substance: UBLITUXIMAB
     Indication: Multiple sclerosis
     Dosage: 150 MILLIGRAM
     Route: 042
     Dates: start: 20241009, end: 20241009
  2. UBLITUXIMAB [Suspect]
     Active Substance: UBLITUXIMAB
     Dosage: 450 MILLIGRAM
     Route: 042
     Dates: start: 20241023, end: 20241023
  3. UBLITUXIMAB [Suspect]
     Active Substance: UBLITUXIMAB
     Dosage: 450 MILLIGRAM
     Route: 042
     Dates: start: 20250403, end: 20250403

REACTIONS (12)
  - Multiple sclerosis [Unknown]
  - Temperature regulation disorder [Unknown]
  - Heart rate irregular [Unknown]
  - Incontinence [Unknown]
  - Depression [Unknown]
  - Headache [Unknown]
  - Aphasia [Unknown]
  - Memory impairment [Unknown]
  - Fall [Unknown]
  - Muscular weakness [Unknown]
  - Brain fog [Unknown]
  - Drug effect less than expected [Unknown]

NARRATIVE: CASE EVENT DATE: 20250301
